FAERS Safety Report 18665055 (Version 1)
Quarter: 2020Q4

REPORT INFORMATION
  Report Type: Report from Study
  Country: IE (occurrence: IE)
  Receive Date: 20201225
  Receipt Date: 20201225
  Transmission Date: 20210114
  Serious: Yes (Other)
  Sender: FDA-Public Use
  Company Number: IE-TAKEDA-IE202033806

PATIENT
  Age: 17 Year
  Sex: Male

DRUGS (18)
  1. SERETIDE [Concomitant]
     Active Substance: FLUTICASONE PROPIONATE\SALMETEROL XINAFOATE
     Dosage: 125 MILLIGRAM, 3X/DAY:TID
     Route: 050
  2. ERYTHROMYCIN. [Concomitant]
     Active Substance: ERYTHROMYCIN
     Dosage: 250 MILLIGRAM, 3X A WEEK
     Route: 050
  3. AMOXICILLIN. [Concomitant]
     Active Substance: AMOXICILLIN
     Dosage: 250 MILLIGRAM, 3X/DAY:TID
     Route: 050
  4. FEXOFENADINE [Concomitant]
     Active Substance: FEXOFENADINE HYDROCHLORIDE
     Dosage: 120 MILLIGRAM, 1X/DAY:QD
     Route: 050
  5. IDURSULFASE [Suspect]
     Active Substance: IDURSULFASE
     Dosage: 30 MILLIGRAM, 1/WEEK
     Route: 042
     Dates: start: 20201217
  6. SALBUTAMOL [Concomitant]
     Active Substance: ALBUTEROL
     Dosage: 5 MILLIGRAM, AS REQ^D
     Route: 050
  7. PULMICORT TURBUHALER [Concomitant]
     Active Substance: BUDESONIDE
     Dosage: 1 MILLIGRAM, NIGHT EXTRA
     Route: 050
  8. PREDNISOLONE. [Concomitant]
     Active Substance: PREDNISOLONE
     Dosage: 30 MILLIGRAM, 1X/DAY:QD
     Route: 050
  9. AUGMENTIN [Concomitant]
     Active Substance: AMOXICILLIN\CLAVULANATE POTASSIUM
     Dosage: 625 MILLIGRAM, 2X/DAY:BID
     Route: 050
  10. IDURSULFASE [Suspect]
     Active Substance: IDURSULFASE
     Indication: MUCOPOLYSACCHARIDOSIS II
     Dosage: 24 MILLIGRAM, 1/WEEK
     Route: 042
     Dates: start: 20120119
  11. IDURSULFASE [Suspect]
     Active Substance: IDURSULFASE
     Dosage: 30 MILLIGRAM, 1/WEEK
     Route: 042
     Dates: start: 20120119
  12. MUCOCLEAR [SODIUM CHLORIDE] [Concomitant]
     Dosage: 1 N/A, 3X/DAY:TID
     Route: 050
  13. ZIRTEK [Concomitant]
     Active Substance: CETIRIZINE HYDROCHLORIDE
     Dosage: 10 MILLIGRAM, 1X/DAY:QD
     Route: 050
  14. SPIRIVA RESPIMAT [Concomitant]
     Active Substance: TIOTROPIUM BROMIDE
     Dosage: 2.5 MICROGRAM, 2X/DAY:BID
     Route: 050
  15. MONTELUKAST TEVA [Concomitant]
     Active Substance: MONTELUKAST SODIUM
     Dosage: 10 MILLIGRAM, AT NIGHT
     Route: 050
  16. HEPARIN SODIUM. [Concomitant]
     Active Substance: HEPARIN SODIUM
     Dosage: UNK
     Route: 050
  17. ERYTHROMYCIN. [Concomitant]
     Active Substance: ERYTHROMYCIN
     Dosage: 250 MILLIGRAM, QD
  18. RELVAR ELLIPTA [FLUTICASONE FUROATE;VILANTEROL TRIFENATATE] [Concomitant]
     Active Substance: FLUTICASONE FUROATE\VILANTEROL TRIFENATATE
     Dosage: 1 MICROGRAM, 1X/DAY:QD
     Route: 050

REACTIONS (1)
  - Respiratory tract infection [Recovering/Resolving]

NARRATIVE: CASE EVENT DATE: 20201215
